FAERS Safety Report 10746343 (Version 1)
Quarter: 2015Q1

REPORT INFORMATION
  Report Type: Spontaneous
  Country: US (occurrence: US)
  Receive Date: 20150128
  Receipt Date: 20150128
  Transmission Date: 20150721
  Serious: Yes (Disabling, Other)
  Sender: FDA-Public Use
  Company Number: US-PFIZER INC-2015036369

PATIENT
  Sex: Male

DRUGS (1)
  1. NEURONTIN [Suspect]
     Active Substance: GABAPENTIN

REACTIONS (6)
  - Aphonia [Unknown]
  - Nerve injury [Unknown]
  - Myocardial infarction [Unknown]
  - Accident at work [Unknown]
  - Polyneuropathy in malignant disease [Unknown]
  - Herpes zoster [Unknown]
